FAERS Safety Report 13575850 (Version 1)
Quarter: 2017Q2

REPORT INFORMATION
  Report Type: Spontaneous
  Country: US (occurrence: US)
  Receive Date: 20170524
  Receipt Date: 20170524
  Transmission Date: 20170830
  Serious: Yes (Other)
  Sender: FDA-Public Use
  Company Number: US-ROCHE-1939076

PATIENT
  Age: 63 Year
  Sex: Female

DRUGS (6)
  1. PEPCID (UNITED STATES) [Concomitant]
     Route: 042
  2. SOLU-CORTEF [Concomitant]
     Active Substance: HYDROCORTISONE SODIUM SUCCINATE
     Route: 042
  3. OCREVUS [Suspect]
     Active Substance: OCRELIZUMAB
     Indication: MULTIPLE SCLEROSIS
     Dosage: DAY 1 THEN DAY 15 THEN 500MG EVERY 6 MONTHS ;ONGOING: YES? INFUSION WAS RESTARTED AT 1/2 THE DOSE PE
     Route: 042
     Dates: start: 20170522
  4. BENADRYL [Concomitant]
     Active Substance: DIPHENHYDRAMINE HYDROCHLORIDE
     Dosage: ONE TIME DOSE ;ONGOING: NO?AS PRE-MEDICATION
     Route: 048
     Dates: start: 20170522, end: 20170522
  5. SOLU-MEDROL [Concomitant]
     Active Substance: METHYLPREDNISOLONE SODIUM SUCCINATE
     Dosage: ONE TIME DOSE ;ONGOING: NO?PRE-MEDICATION
     Route: 042
     Dates: start: 20170522, end: 20170522
  6. TYLENOL [Concomitant]
     Active Substance: ACETAMINOPHEN
     Dosage: ONE TIME DOSE ;ONGOING: NO?PRE-MEDICATION
     Route: 048
     Dates: start: 20170522, end: 20170522

REACTIONS (1)
  - Infusion related reaction [Recovering/Resolving]

NARRATIVE: CASE EVENT DATE: 20170522
